FAERS Safety Report 9299150 (Version 1)
Quarter: 2013Q2

REPORT INFORMATION
  Report Type: Spontaneous
  Country: GB (occurrence: GB)
  Receive Date: 20130520
  Receipt Date: 20130520
  Transmission Date: 20140414
  Serious: Yes (Hospitalization)
  Sender: FDA-Public Use
  Company Number: GB-TEVA-404770ISR

PATIENT
  Age: 40 Year
  Sex: Male
  Weight: 108.4 kg

DRUGS (1)
  1. LEVOTHYROXINE [Suspect]
     Route: 048
     Dates: start: 201103, end: 20110314

REACTIONS (4)
  - Feeling drunk [Recovered/Resolved]
  - Dysstasia [Recovered/Resolved]
  - Bedridden [Recovered/Resolved]
  - Drug interaction [Unknown]
